FAERS Safety Report 7246205-6 (Version None)
Quarter: 2011Q1

REPORT INFORMATION
  Report Type: 
  Country: None (occurrence: None)
  Receive Date: 20110126
  Receipt Date: 20110117
  Transmission Date: 20110831
  Serious: Yes (Other)
  Sender: FDA-Public Use
  Company Number: B0695434A

PATIENT
  Sex: Female

DRUGS (8)
  1. SEREVENT [Suspect]
     Indication: ASTHMA
     Dosage: 2PUFF TWICE PER DAY
     Route: 055
  2. ZOTON [Concomitant]
  3. RADIOTHERAPY [Concomitant]
  4. HERCEPTIN [Suspect]
     Indication: BREAST CANCER
     Route: 042
     Dates: start: 20100706
  5. ARIMIDEX [Concomitant]
     Dates: start: 20101101
  6. VENTOLIN [Suspect]
     Indication: ASTHMA
     Route: 048
  7. BECOTIDE [Suspect]
     Indication: ASTHMA
     Dosage: 2PUFF TWICE PER DAY
     Route: 048
  8. CITALOPRAM [Concomitant]

REACTIONS (6)
  - WEIGHT INCREASED [None]
  - BLOOD MAGNESIUM DECREASED [None]
  - HYPERTENSION [None]
  - PALPITATIONS [None]
  - BLOOD GLUCOSE INCREASED [None]
  - BLOOD POTASSIUM DECREASED [None]
